FAERS Safety Report 13585376 (Version 1)
Quarter: 2017Q2

REPORT INFORMATION
  Report Type: Spontaneous
  Country: US (occurrence: US)
  Receive Date: 20170526
  Receipt Date: 20170526
  Transmission Date: 20170830
  Serious: No
  Sender: FDA-Public Use
  Company Number: None

PATIENT
  Age: 62 Year
  Sex: Female
  Weight: 60.33 kg

DRUGS (5)
  1. GABAPENTIN. [Concomitant]
     Active Substance: GABAPENTIN
  2. CHEWING GUM [Concomitant]
     Active Substance: UNSPECIFIED INGREDIENT
  3. VALIUM [Concomitant]
     Active Substance: DIAZEPAM
  4. ONE A DAY WOMENS VITAMIN [Concomitant]
  5. CHLORHEXIDINE GLUCONATE 0.12% ORAL RINSE [Suspect]
     Active Substance: CHLORHEXIDINE GLUCONATE
     Indication: ORAL CANDIDIASIS
     Route: 048
     Dates: start: 20170220, end: 20170320

REACTIONS (5)
  - Thermal burn [None]
  - Oral discomfort [None]
  - Tongue discomfort [None]
  - Choking [None]
  - Burning mouth syndrome [None]

NARRATIVE: CASE EVENT DATE: 20170220
